FAERS Safety Report 5256122-9 (Version None)
Quarter: 2007Q1

REPORT INFORMATION
  Report Type: 
  Country: None (occurrence: None)
  Receive Date: 20070306
  Receipt Date: 20070227
  Transmission Date: 20070707
  Serious: Yes (Other)
  Sender: FDA-Public Use
  Company Number: ES-JNJFOC-20070300206

PATIENT
  Sex: Male

DRUGS (7)
  1. RISPERDAL [Suspect]
     Route: 048
  2. RISPERDAL [Suspect]
     Indication: SCHIZOPHRENIA
     Route: 048
  3. RISPERDAL CONSTA [Suspect]
     Route: 030
  4. RISPERDAL CONSTA [Suspect]
     Indication: SCHIZOPHRENIA
     Route: 030
  5. TOPAMAX [Suspect]
     Indication: ANXIETY DISORDER
     Route: 065
  6. IDALPREM [Concomitant]
  7. SEROQUEL [Concomitant]
     Indication: SCHIZOPHRENIA

REACTIONS (4)
  - ANXIETY DISORDER [None]
  - DRUG INEFFECTIVE [None]
  - OFF LABEL USE [None]
  - PSYCHOTIC DISORDER [None]
